FAERS Safety Report 8191713-7 (Version None)
Quarter: 2012Q1

REPORT INFORMATION
  Report Type: 
  Country: None (occurrence: None)
  Receive Date: 20120307
  Receipt Date: 20110314
  Transmission Date: 20120608
  Serious: No
  Sender: FDA-Public Use
  Company Number: US-ASTRAZENECA-2010SE20409

PATIENT
  Age: 71 Year
  Sex: Female

DRUGS (2)
  1. HYDROCODONE BITARTRATE [Concomitant]
  2. ZOMIG [Suspect]
     Indication: MIGRAINE
     Route: 048

REACTIONS (6)
  - MALAISE [None]
  - HEADACHE [None]
  - FIBROMYALGIA [None]
  - MIGRAINE [None]
  - SURGERY [None]
  - DRUG INEFFECTIVE [None]
